FAERS Safety Report 20482243 (Version 1)
Quarter: 2022Q1

REPORT INFORMATION
  Report Type: Spontaneous
  Country: GB (occurrence: GB)
  Receive Date: 20220216
  Receipt Date: 20220216
  Transmission Date: 20220423
  Serious: Yes (Hospitalization, Other)
  Sender: FDA-Public Use
  Company Number: None

PATIENT
  Age: 60 Year
  Sex: Male

DRUGS (7)
  1. ENBREL [Suspect]
     Active Substance: ETANERCEPT
     Indication: Rheumatoid arthritis
     Dosage: 50 MG, WEEKLY
     Route: 058
     Dates: start: 20181001
  2. LEFLUNOMIDE [Suspect]
     Active Substance: LEFLUNOMIDE
     Indication: Rheumatoid arthritis
     Dosage: 20 MG, DAILY
     Route: 048
     Dates: start: 20160901
  3. FLUCLOXACILLIN [Concomitant]
     Active Substance: FLUCLOXACILLIN
     Dosage: UNK
  4. LATANOPROST [Concomitant]
     Active Substance: LATANOPROST
     Dosage: UNK
  5. MORPHINE [Concomitant]
     Active Substance: MORPHINE
     Dosage: UNK
  6. OMEPRAZOLE [Concomitant]
     Active Substance: OMEPRAZOLE
     Dosage: UNK
  7. ACETAMINOPHEN [Concomitant]
     Active Substance: ACETAMINOPHEN
     Dosage: UNK

REACTIONS (5)
  - Postoperative wound infection [Recovering/Resolving]
  - Cellulitis [Recovering/Resolving]
  - Device related infection [Recovering/Resolving]
  - Tibia fracture [Unknown]
  - Stress fracture [Unknown]

NARRATIVE: CASE EVENT DATE: 20220121
